FAERS Safety Report 5066134-6 (Version None)
Quarter: 2006Q3

REPORT INFORMATION
  Report Type: 
  Country: None (occurrence: None)
  Receive Date: 20060725
  Receipt Date: 20060711
  Transmission Date: 20061208
  Serious: Yes (Hospitalization)
  Sender: FDA-Public Use
  Company Number: DEU-2006-0002296

PATIENT
  Age: 53 Year
  Sex: Female
  Weight: 74 kg

DRUGS (3)
  1. OXYCODONE HCL/NALOXONE [Suspect]
     Indication: BACK PAIN
     Dosage: 20 MG, BID; ORAL
     Route: 048
     Dates: start: 20060307, end: 20060603
  2. DICLOBENE (DICLOFENAC SODIUM) [Concomitant]
  3. CALTRATE (CALCIUM CARBONATE) [Concomitant]

REACTIONS (3)
  - CHOLECYSTITIS ACUTE [None]
  - CHOLELITHIASIS [None]
  - DYSPEPSIA [None]
